FAERS Safety Report 6600527-8 (Version None)
Quarter: 2010Q1

REPORT INFORMATION
  Report Type: 
  Country: None (occurrence: None)
  Receive Date: 20100224
  Receipt Date: 20100216
  Transmission Date: 20100710
  Serious: Yes (Hospitalization, Disabling)
  Sender: FDA-Public Use
  Company Number: US-MERCK-0710USA06031

PATIENT
  Age: 83 Year
  Sex: Female
  Weight: 57 kg

DRUGS (8)
  1. FOSAMAX [Suspect]
     Indication: OSTEOPOROSIS
     Route: 048
     Dates: start: 20020301, end: 20060303
  2. FOSAMAX PLUS D [Suspect]
     Indication: OSTEOPOROSIS
     Route: 048
  3. ADALAT CC [Concomitant]
     Indication: HYPERTENSION
     Route: 065
     Dates: start: 20000510, end: 20020304
  4. NIFEDIPINE [Concomitant]
     Indication: CHEST PAIN
     Route: 065
     Dates: start: 19970205, end: 20050418
  5. ASPIRIN [Concomitant]
     Indication: PAIN
     Route: 065
     Dates: start: 19970205, end: 20050418
  6. LESCOL [Concomitant]
     Route: 065
     Dates: start: 20000705, end: 20020204
  7. NAPROXEN [Concomitant]
     Route: 065
     Dates: start: 19970205, end: 20020226
  8. PREDNISONE [Concomitant]
     Route: 065
     Dates: start: 20010615, end: 20020213

REACTIONS (20)
  - ACTINIC KERATOSIS [None]
  - CAROTID ARTERY STENOSIS [None]
  - CATARACT [None]
  - CHRONIC OBSTRUCTIVE PULMONARY DISEASE [None]
  - DIARRHOEA [None]
  - EYE DISORDER [None]
  - FACE INJURY [None]
  - FALL [None]
  - IMPAIRED FASTING GLUCOSE [None]
  - INTERMITTENT CLAUDICATION [None]
  - JAW FRACTURE [None]
  - MYALGIA [None]
  - OSTEOARTHRITIS [None]
  - OSTEOMYELITIS [None]
  - OSTEONECROSIS [None]
  - PAIN [None]
  - PERIPHERAL VASCULAR DISORDER [None]
  - POLYMYALGIA RHEUMATICA [None]
  - SUBCLAVIAN ARTERY STENOSIS [None]
  - WEIGHT DECREASED [None]
